FAERS Safety Report 8130246-0 (Version None)
Quarter: 2012Q1

REPORT INFORMATION
  Report Type: 
  Country: None (occurrence: None)
  Receive Date: 20120210
  Receipt Date: 20120203
  Transmission Date: 20120608
  Serious: Yes (Other)
  Sender: FDA-Public Use
  Company Number: PHEH2012US001798

PATIENT
  Sex: Female
  Weight: 66.213 kg

DRUGS (11)
  1. GLUCOSAMINE W/CHONDROITIN [Concomitant]
     Dosage: GLUCOSAMINE 1500 MG- CHONDROITIN 1200 MG/ 30 ML, UNK
  2. ASCORBIC ACID [Concomitant]
     Dosage: 500 MG, UNK
     Route: 048
  3. MULTI-VITAMINS [Concomitant]
     Route: 048
  4. TRICOR [Concomitant]
     Route: 048
  5. OMEGA-3 FATTY ACIDS [Concomitant]
  6. CRESTOR [Concomitant]
     Dosage: 5 MG, UNK
     Route: 048
  7. MULTIVITAMIN [Concomitant]
     Route: 048
  8. ESTROVEN [Concomitant]
     Route: 048
  9. ZINC SULFATE [Concomitant]
     Route: 048
  10. GILENYA [Suspect]
     Indication: RELAPSING-REMITTING MULTIPLE SCLEROSIS
     Dosage: 0.5 MG, QD
     Route: 048
     Dates: start: 20110207, end: 20110901
  11. CALCIUM 1200 [Concomitant]
     Route: 048

REACTIONS (9)
  - GAIT DISTURBANCE [None]
  - LYMPHOCYTE COUNT DECREASED [None]
  - RETINAL DETACHMENT [None]
  - MACULAR OEDEMA [None]
  - WHITE BLOOD CELL COUNT DECREASED [None]
  - SOMNOLENCE [None]
  - PUPILS UNEQUAL [None]
  - FATIGUE [None]
  - HYPOAESTHESIA [None]
